FAERS Safety Report 5363180-X (Version None)
Quarter: 2007Q2

REPORT INFORMATION
  Report Type: 
  Country: None (occurrence: None)
  Receive Date: 20070620
  Receipt Date: 20070613
  Transmission Date: 20071010
  Serious: Yes (Disabling)
  Sender: FDA-Public Use
  Company Number: PHBS2007JP08642

PATIENT
  Age: 70 Year
  Sex: Female

DRUGS (1)
  1. LUDIOMIL [Suspect]
     Indication: DEPRESSION
     Dosage: UNK, UNK
     Route: 048
     Dates: start: 20070301, end: 20070501

REACTIONS (1)
  - HYPONATRAEMIA [None]
